FAERS Safety Report 8346929-3 (Version None)
Quarter: 2012Q2

REPORT INFORMATION
  Report Type: 
  Country: None (occurrence: None)
  Receive Date: 20120507
  Receipt Date: 20120507
  Transmission Date: 20120825
  Serious: Yes (Hospitalization)
  Sender: FDA-Public Use
  Company Number: None

PATIENT
  Age: 67 Year
  Sex: Male
  Weight: 86.6 kg

DRUGS (2)
  1. METHOCARBAMOL [Suspect]
     Indication: PAIN
     Dosage: MG PO
     Route: 048
     Dates: start: 20050920, end: 20120405
  2. ACETAMINOPHEN/HYDROCODONE BITARTRATE [Suspect]
     Indication: PAIN
     Dosage: MG PO
     Route: 048
     Dates: start: 20090224

REACTIONS (11)
  - LOSS OF CONSCIOUSNESS [None]
  - RESPIRATORY DEPRESSION [None]
  - MENTAL STATUS CHANGES [None]
  - TREMOR [None]
  - ABDOMINAL PAIN [None]
  - INCORRECT DOSE ADMINISTERED [None]
  - CONFUSIONAL STATE [None]
  - MYALGIA [None]
  - CONVULSION [None]
  - SEDATION [None]
  - HEPATIC ENZYME INCREASED [None]
